FAERS Safety Report 7974070-8 (Version None)
Quarter: 2011Q4

REPORT INFORMATION
  Report Type: 
  Country: None (occurrence: None)
  Receive Date: 20111213
  Receipt Date: 20111107
  Transmission Date: 20120403
  Serious: Yes (Hospitalization)
  Sender: FDA-Public Use
  Company Number: DE-ROCHE-1008721

PATIENT
  Sex: Male
  Weight: 72 kg

DRUGS (14)
  1. MIRCERA [Suspect]
     Indication: NEPHROGENIC ANAEMIA
     Route: 042
     Dates: start: 20110607
  2. EZETIMIBE/SIMVASTATIN [Concomitant]
     Dates: start: 20091013
  3. PANKREATIN [Concomitant]
     Dosage: 75000
     Dates: start: 20091013
  4. ACETYLSALICYLIC ACID SRT [Concomitant]
     Dates: start: 20091013
  5. METOCLOPRAMIDE HCL [Concomitant]
     Dosage: 20 TRPF
     Dates: start: 20091013
  6. ZOPICLON [Concomitant]
     Dates: start: 20091013
  7. CALCIUM ACETATE [Concomitant]
     Dates: start: 20091013
  8. ROCALTROL [Concomitant]
     Dates: start: 20091013
  9. ALUMINIUM CHLORIDE HYDROXIDE HYDRATE [Concomitant]
     Dates: start: 20091229
  10. PANTOPRAZOLE [Concomitant]
     Dates: start: 20091013
  11. MAGNESIUM SULFATE [Concomitant]
     Dates: start: 20091013
  12. MAGALDRATE [Concomitant]
     Dates: start: 20091013
  13. METOPROLOL TARTRATE [Concomitant]
     Dates: start: 20091110
  14. METAMIZOL [Concomitant]
     Dosage: 60 TRFP
     Dates: start: 20091013

REACTIONS (1)
  - VENOUS STENOSIS [None]
